FAERS Safety Report 8130476-8 (Version None)
Quarter: 2012Q1

REPORT INFORMATION
  Report Type: 
  Country: None (occurrence: None)
  Receive Date: 20120210
  Receipt Date: 20120201
  Transmission Date: 20120608
  Serious: Yes (Death, Hospitalization)
  Sender: FDA-Public Use
  Company Number: FR-MERCK-1202USA00964

PATIENT
  Age: 65 Year
  Sex: Male

DRUGS (12)
  1. POTASSIUM CHLORIDE [Concomitant]
     Route: 065
  2. HYZAAR [Suspect]
     Indication: HYPERTENSION
     Route: 048
     Dates: start: 20110201
  3. LANSOPRAZOLE [Suspect]
     Route: 048
     Dates: start: 20100901
  4. TRAMADOL HCL [Concomitant]
     Indication: PAIN
     Route: 065
  5. HYPERIUM [Suspect]
     Indication: HYPERTENSION
     Route: 065
     Dates: start: 20100901
  6. ACETAMINOPHEN [Concomitant]
     Route: 065
  7. SPASFON-LYOC [Concomitant]
     Route: 065
  8. HYZAAR [Suspect]
     Route: 048
     Dates: start: 20100901, end: 20110201
  9. LOVENOX [Suspect]
     Route: 058
     Dates: start: 20111107, end: 20111125
  10. SUTENT [Suspect]
     Indication: RENAL CANCER METASTATIC
     Route: 048
     Dates: start: 20101020
  11. SYMBICORT [Suspect]
     Indication: CHRONIC OBSTRUCTIVE PULMONARY DISEASE
     Route: 055
     Dates: start: 20100901
  12. AMLODIPINE BESYLATE [Suspect]
     Route: 048
     Dates: start: 20101201

REACTIONS (1)
  - AORTIC DISSECTION [None]
